FAERS Safety Report 19376123 (Version 2)
Quarter: 2021Q3

REPORT INFORMATION
  Report Type: Spontaneous
  Country: NL (occurrence: NL)
  Receive Date: 20210605
  Receipt Date: 20210826
  Transmission Date: 20211014
  Serious: Yes (Hospitalization, Other)
  Sender: FDA-Public Use
  Company Number: NL-AUROBINDO-AUR-APL-2021-022268

PATIENT
  Age: 64 Year
  Sex: Male

DRUGS (8)
  1. REMDESIVIR. [Interacting]
     Active Substance: REMDESIVIR
     Indication: COVID-19
     Dosage: UNK
     Route: 065
     Dates: start: 20200416, end: 20200421
  2. ENALAPRIL [Concomitant]
     Active Substance: ENALAPRIL
     Indication: HYPERTENSION
     Dosage: UNK
     Route: 065
  3. SIMVASTATIN. [Concomitant]
     Active Substance: SIMVASTATIN
     Indication: HYPERCHOLESTEROLAEMIA
     Dosage: UNK
     Route: 065
  4. CHLOROQUINE. [Interacting]
     Active Substance: CHLOROQUINE
     Indication: COVID-19
     Dosage: 600 MILLIGRAM (LOADING DOSE)
     Route: 065
     Dates: start: 20200401, end: 202004
  5. AMIODARONE [Suspect]
     Active Substance: AMIODARONE
     Indication: ATRIAL FIBRILLATION
     Dosage: 700 MILLIGRAM (ON DAY 18, 2ND DAY ATER INITIATION OF REMDESIVIR)
     Route: 065
     Dates: start: 20200418
  6. CHLOROQUINE. [Interacting]
     Active Substance: CHLOROQUINE
     Dosage: 300 MILLIGRAM, TWO TIMES A DAY
     Route: 065
     Dates: start: 202004, end: 20200407
  7. AMLODIPIN [Concomitant]
     Active Substance: AMLODIPINE BESYLATE
     Indication: HYPERTENSION
     Dosage: UNK
     Route: 065
  8. OXYGEN. [Concomitant]
     Active Substance: OXYGEN
     Indication: COVID-19
     Dosage: UNK
     Route: 065
     Dates: start: 202004

REACTIONS (3)
  - Hepatotoxicity [Recovered/Resolved]
  - Drug interaction [Recovered/Resolved]
  - Drug-induced liver injury [Recovered/Resolved]

NARRATIVE: CASE EVENT DATE: 20200421
